FAERS Safety Report 18591375 (Version 1)
Quarter: 2020Q4

REPORT INFORMATION
  Report Type: Spontaneous
  Country: FI (occurrence: FI)
  Receive Date: 20201208
  Receipt Date: 20201208
  Transmission Date: 20210114
  Serious: Yes (Disabling)
  Sender: FDA-Public Use
  Company Number: FI-TEVA-2020-FI-1857160

PATIENT
  Age: 26 Year
  Sex: Female

DRUGS (7)
  1. MAXALT [Concomitant]
     Active Substance: RIZATRIPTAN BENZOATE
     Indication: MIGRAINE
     Dosage: 10,MG,DAILY
     Route: 048
  2. AJOVY [Suspect]
     Active Substance: FREMANEZUMAB-VFRM
     Indication: MIGRAINE
     Route: 058
     Dates: start: 20200519, end: 20200812
  3. DESOGESTREL STADA [Concomitant]
     Dosage: 75,UG,DAILY
     Route: 048
  4. AIMOVIG [Suspect]
     Active Substance: ERENUMAB-AOOE
     Indication: MIGRAINE
     Route: 058
     Dates: start: 20200401, end: 20200519
  5. MIRANAX [Concomitant]
     Indication: MIGRAINE
     Dosage: 550,MG,DAILY
     Route: 048
  6. RELERT [Concomitant]
     Active Substance: ELETRIPTAN HYDROBROMIDE
     Indication: MIGRAINE
     Dosage: 40,MG,DAILY
     Route: 048
  7. PANADOL FORTE [Concomitant]
     Indication: MIGRAINE
     Dosage: 1000,MG,DAILY
     Route: 048

REACTIONS (10)
  - Diplopia [Not Recovered/Not Resolved]
  - Diarrhoea [Not Recovered/Not Resolved]
  - Blood thyroid stimulating hormone decreased [Not Recovered/Not Resolved]
  - Abdominal pain [Not Recovered/Not Resolved]
  - Weight decreased [Not Recovered/Not Resolved]
  - Palpitations [Not Recovered/Not Resolved]
  - Hyperhidrosis [Not Recovered/Not Resolved]
  - Hyperthyroidism [Not Recovered/Not Resolved]
  - Insomnia [Not Recovered/Not Resolved]
  - Thyroxine free increased [Not Recovered/Not Resolved]

NARRATIVE: CASE EVENT DATE: 20200601
